FAERS Safety Report 17965641 (Version 1)
Quarter: 2020Q3

REPORT INFORMATION
  Report Type: Spontaneous
  Country: TH (occurrence: TH)
  Receive Date: 20200701
  Receipt Date: 20200701
  Transmission Date: 20201103
  Serious: Yes (Other)
  Sender: FDA-Public Use
  Company Number: TH-ROCHE-2632117

PATIENT
  Age: 67 Year
  Sex: Male
  Weight: 67.8 kg

DRUGS (4)
  1. BEVACIZUMAB. [Suspect]
     Active Substance: BEVACIZUMAB
     Indication: HEPATOCELLULAR CARCINOMA
     Dosage: 15MG/KG
     Route: 065
  2. ATEZOLIZUMAB. [Suspect]
     Active Substance: ATEZOLIZUMAB
     Indication: METASTASES TO LUNG
  3. BEVACIZUMAB. [Suspect]
     Active Substance: BEVACIZUMAB
     Indication: METASTASES TO LUNG
  4. ATEZOLIZUMAB. [Suspect]
     Active Substance: ATEZOLIZUMAB
     Indication: HEPATOCELLULAR CARCINOMA
     Route: 041

REACTIONS (7)
  - Tumour necrosis [Unknown]
  - Off label use [Unknown]
  - Oedema peripheral [Recovered/Resolved]
  - Amylase increased [Unknown]
  - Lipase increased [Unknown]
  - Blood thyroid stimulating hormone increased [Unknown]
  - Testicular oedema [Recovered/Resolved]
